FAERS Safety Report 7097729-6 (Version None)
Quarter: 2010Q4

REPORT INFORMATION
  Report Type: 
  Country: None (occurrence: None)
  Receive Date: 20101112
  Receipt Date: 20101030
  Transmission Date: 20110411
  Serious: Yes (Hospitalization, Other)
  Sender: FDA-Public Use
  Company Number: US-PAR PHARMACEUTICAL, INC-2010SCPR002283

PATIENT
  Age: 12 Year
  Sex: Male

DRUGS (5)
  1. IBUPROFEN [Suspect]
     Indication: COUGH
     Dosage: UNK
     Route: 065
  2. IBUPROFEN [Suspect]
     Indication: MALAISE
  3. IBUPROFEN [Suspect]
     Indication: PYREXIA
  4. IBUPROFEN [Suspect]
     Indication: NASAL CONGESTION
  5. OSELTAMIVIR [Suspect]
     Indication: INFLUENZA
     Dosage: UNK
     Route: 065

REACTIONS (2)
  - HAEMATEMESIS [None]
  - PETECHIAE [None]
